FAERS Safety Report 9725187 (Version 1)
Quarter: 2013Q4

REPORT INFORMATION
  Report Type: Spontaneous
  Country: CA (occurrence: CA)
  Receive Date: 20131203
  Receipt Date: 20131203
  Transmission Date: 20140711
  Serious: Yes (Other)
  Sender: FDA-Public Use
  Company Number: CA-AMGEN-CANSP2013083975

PATIENT
  Age: 47 Year
  Sex: Female

DRUGS (10)
  1. XGEVA [Suspect]
     Indication: PRODUCT USED FOR UNKNOWN INDICATION
     Dosage: 120 MG, UNK
     Route: 065
     Dates: start: 20130115
  2. CALCIUM [Concomitant]
     Route: 065
  3. VITAMIN D                          /00107901/ [Concomitant]
     Route: 065
  4. XARELTO [Concomitant]
     Route: 065
  5. SYNTHROID [Concomitant]
     Route: 065
  6. NEXIUM                             /01479302/ [Concomitant]
     Dosage: UNK UNK, AS NECESSARY
     Route: 065
  7. BISACODYL [Concomitant]
     Dosage: UNK UNK, AS NECESSARY
     Route: 065
  8. HYDROMORPH CONTIN [Concomitant]
     Route: 065
  9. DILAUDID [Concomitant]
     Dosage: 4 MG, AS NECESSARY
     Route: 065
  10. STEMETIL                           /00013301/ [Concomitant]
     Dosage: UNK UNK, AS NECESSARY
     Route: 065

REACTIONS (1)
  - Kidney infection [Unknown]
